FAERS Safety Report 24552185 (Version 2)
Quarter: 2024Q4

REPORT INFORMATION
  Report Type: Spontaneous
  Country: US (occurrence: US)
  Receive Date: 20241026
  Receipt Date: 20241030
  Transmission Date: 20250114
  Serious: No
  Sender: AMGEN
  Company Number: US-AMGEN-USASP2024212248

PATIENT
  Age: 56 Year
  Sex: Male

DRUGS (1)
  1. RAVICTI [Suspect]
     Active Substance: GLYCEROL PHENYLBUTYRATE
     Indication: Arginase deficiency
     Dosage: 3 MILLILITER, TID, (ORAL LIQUID 1.1 GRAMSIML 25ML BT)
     Route: 048

REACTIONS (1)
  - Gait inability [Unknown]
